FAERS Safety Report 5767303-X (Version None)
Quarter: 2008Q2

REPORT INFORMATION
  Report Type: 
  Country: None (occurrence: None)
  Receive Date: 20080611
  Receipt Date: 20080611
  Transmission Date: 20081010
  Serious: Yes (Other)
  Sender: FDA-Public Use
  Company Number: None

PATIENT
  Age: 65 Year
  Sex: Female
  Weight: 67.586 kg

DRUGS (1)
  1. CRESTOR [Suspect]
     Indication: BLOOD CHOLESTEROL INCREASED
     Dosage: 5 MG. 1 DAILY PO
     Route: 048
     Dates: start: 20070826, end: 20080428

REACTIONS (5)
  - ARTHRALGIA [None]
  - FATIGUE [None]
  - FIBROMYALGIA [None]
  - MYALGIA [None]
  - OSTEOARTHRITIS [None]
